FAERS Safety Report 8451817 (Version 2)
Quarter: 2013Q1

REPORT INFORMATION
  Report Type: Spontaneous
  Country: US (occurrence: US)
  Receive Date: 20120309
  Receipt Date: 20130326
  Transmission Date: 20140127
  Serious: Yes (Hospitalization)
  Sender: FDA-Public Use
  Company Number: US-ROCHE-1044700

PATIENT
  Sex: Female
  Weight: 75.82 kg

DRUGS (5)
  1. BONIVA [Suspect]
     Indication: PRODUCT USED FOR UNKNOWN INDICATION
     Route: 048
     Dates: start: 20060125, end: 20100630
  2. BONIVA [Suspect]
     Route: 048
     Dates: start: 20100128
  3. FOSAMAX [Suspect]
     Indication: PRODUCT USED FOR UNKNOWN INDICATION
     Route: 048
     Dates: start: 20020903
  4. FOSAMAX [Suspect]
     Route: 048
     Dates: start: 20020919
  5. FOSAMAX [Suspect]
     Route: 048
     Dates: start: 20050218, end: 20051231

REACTIONS (1)
  - Pathological fracture [Unknown]
